FAERS Safety Report 8585780-6 (Version None)
Quarter: 2012Q3

REPORT INFORMATION
  Report Type: 
  Country: None (occurrence: None)
  Receive Date: 20120802
  Receipt Date: 20120802
  Transmission Date: 20120928
  Serious: No
  Sender: FDA-Public Use
  Company Number: None

PATIENT
  Age: 42 Year
  Sex: Female
  Weight: 48.5349 kg

DRUGS (1)
  1. SINGULAIR [Suspect]
     Indication: MULTIPLE ALLERGIES
     Dosage: 1 DAILY
     Dates: start: 20120401, end: 20120723

REACTIONS (4)
  - AMNESIA [None]
  - ALCOHOL USE [None]
  - PERSONALITY CHANGE [None]
  - ABNORMAL BEHAVIOUR [None]
